FAERS Safety Report 21213838 (Version 2)
Quarter: 2022Q4

REPORT INFORMATION
  Report Type: Spontaneous
  Country: US (occurrence: US)
  Receive Date: 20220816
  Receipt Date: 20221102
  Transmission Date: 20230112
  Serious: Yes (Death, Hospitalization, Other)
  Sender: FDA-Public Use
  Company Number: US-AMGEN-USASP2022136753

PATIENT

DRUGS (3)
  1. NEULASTA [Suspect]
     Active Substance: PEGFILGRASTIM
     Indication: Hepatitis alcoholic
     Dosage: 0.6 MILLIGRAM, ON DAY 1 AND 8
     Route: 058
  2. PENTOXIFYLLINE [Concomitant]
     Active Substance: PENTOXIFYLLINE
     Dosage: 400 MILLIGRAM, Q8H
  3. PREDNISOLONE [Concomitant]
     Active Substance: PREDNISOLONE

REACTIONS (13)
  - Death [Fatal]
  - Hepatic failure [Fatal]
  - Diverticulum [Fatal]
  - Sepsis [Fatal]
  - Renal failure [Fatal]
  - Loss of consciousness [Fatal]
  - Respiratory failure [Fatal]
  - Abdominal pain [Unknown]
  - Ascites [Unknown]
  - Adverse event [Unknown]
  - Acute kidney injury [Unknown]
  - Hepatorenal syndrome [Unknown]
  - Infection [Unknown]
